FAERS Safety Report 8292661-4 (Version None)
Quarter: 2012Q2

REPORT INFORMATION
  Report Type: 
  Country: None (occurrence: None)
  Receive Date: 20120417
  Receipt Date: 20110729
  Transmission Date: 20120825
  Serious: No
  Sender: FDA-Public Use
  Company Number: US-ASTRAZENECA-2011SE45753

PATIENT
  Sex: Female

DRUGS (9)
  1. LIBRAX [Concomitant]
  2. COREG [Concomitant]
  3. MICARDIS [Concomitant]
  4. PREDNISONE TAB [Concomitant]
  5. ASPIRIN [Concomitant]
  6. VYTORIN [Concomitant]
  7. PLAVIX [Concomitant]
  8. NEURONTIN [Concomitant]
  9. NEXIUM [Suspect]
     Route: 048
     Dates: start: 20070601, end: 20090201

REACTIONS (1)
  - LEFT VENTRICULAR HYPERTROPHY [None]
